FAERS Safety Report 9324219 (Version 1)
Quarter: 2013Q2

REPORT INFORMATION
  Report Type: Spontaneous
  Country: CA (occurrence: CA)
  Receive Date: 20130603
  Receipt Date: 20130603
  Transmission Date: 20140414
  Serious: Yes (Disabling)
  Sender: FDA-Public Use
  Company Number: CA-CELGENEUS-028-21880-13053965

PATIENT
  Age: 74 Year
  Sex: Female

DRUGS (5)
  1. REVLIMID [Suspect]
     Indication: PLASMA CELL MYELOMA
     Dosage: 10 MILLIGRAM
     Route: 048
     Dates: start: 20120912
  2. REVLIMID [Suspect]
     Dosage: 15 MILLIGRAM
     Route: 048
     Dates: start: 20130418
  3. DEXAMETHASONE [Concomitant]
     Indication: PLASMA CELL MYELOMA
     Dosage: 10 MILLIGRAM
     Route: 065
     Dates: start: 20120912
  4. DEXAMETHASONE [Concomitant]
     Dosage: 20 MILLIGRAM
     Route: 048
     Dates: start: 20130418
  5. SYNTHROID [Concomitant]
     Indication: HYPOTHYROIDISM
     Dosage: 150 MICROGRAM
     Route: 048

REACTIONS (1)
  - Malignant melanoma [Recovered/Resolved with Sequelae]
